FAERS Safety Report 8458654-9 (Version None)
Quarter: 2012Q2

REPORT INFORMATION
  Report Type: 
  Country: None (occurrence: None)
  Receive Date: 20120622
  Receipt Date: 20120618
  Transmission Date: 20120825
  Serious: Yes (Other)
  Sender: FDA-Public Use
  Company Number: US-PFIZER INC-2012147194

PATIENT
  Sex: Female
  Weight: 58.05 kg

DRUGS (2)
  1. DILANTIN-125 [Suspect]
     Indication: GRAND MAL CONVULSION
     Dosage: 300 MG, 1X, SUN, MON, WED, FRI AND 200MG 1X TUE, THUR, SAT
  2. ATENOLOL [Suspect]
     Dosage: UNK

REACTIONS (8)
  - BRAIN INJURY [None]
  - CONFUSIONAL STATE [None]
  - AMNESIA [None]
  - CONVULSION [None]
  - ANTICONVULSANT DRUG LEVEL ABNORMAL [None]
  - DEPRESSED LEVEL OF CONSCIOUSNESS [None]
  - HYPOXIA [None]
  - LIMB INJURY [None]
